FAERS Safety Report 8613503-0 (Version None)
Quarter: 2012Q3

REPORT INFORMATION
  Report Type: 
  Country: None (occurrence: None)
  Receive Date: 20120823
  Receipt Date: 20120807
  Transmission Date: 20120928
  Serious: Yes (Other)
  Sender: FDA-Public Use
  Company Number: JP-MERCK-2012SP034499

PATIENT

DRUGS (11)
  1. PEGINTERFERON ALFA-2B [Suspect]
     Indication: HEPATITIS C
     Dosage: 1.5 MICROGRAM PER KILOGRAM, QW
     Route: 058
     Dates: start: 20120425
  2. TELAVIC [Suspect]
     Dosage: 1500 MG, QD
     Route: 048
     Dates: start: 20120524, end: 20120613
  3. LEVOFLOXACIN [Concomitant]
     Dosage: 500 MG PER DAY AS NEEDED
     Route: 048
     Dates: start: 20120502
  4. ALLOPURINOL [Concomitant]
     Indication: HYPERURICAEMIA
     Dosage: 200 MG, QD
     Route: 048
     Dates: start: 20120509, end: 20120718
  5. REBETOL [Suspect]
     Dosage: 400 MG, QD
     Route: 048
     Dates: start: 20120607
  6. TELAVIC [Suspect]
     Dosage: 750 MG, QD
     Dates: start: 20120614, end: 20120718
  7. TELAVIC [Suspect]
     Indication: HEPATITIS C
     Dosage: 2250 MG, QD
     Route: 048
     Dates: start: 20120425, end: 20120523
  8. SULFAMETHOXAZOLE AND TRIMETHOPRIM [Concomitant]
     Dosage: UNK UNK, UNKNOWN
     Route: 048
     Dates: start: 20120530
  9. AZUNOL (SODIUM GUALENATE) [Concomitant]
     Indication: STOMATITIS
     Dosage: UNK, AS NEEDED
     Route: 049
     Dates: start: 20120711
  10. REBETOL [Suspect]
     Indication: HEPATITIS C
     Dosage: 600 MG, QD
     Route: 048
     Dates: start: 20120425, end: 20120606
  11. ANTEBATE [Concomitant]
     Dosage: UNK UNK, AS NEEDED
     Route: 061

REACTIONS (3)
  - ANAEMIA [None]
  - WHITE BLOOD CELL COUNT DECREASED [None]
  - DECREASED APPETITE [None]
